FAERS Safety Report 10073546 (Version 1)
Quarter: 2014Q2

REPORT INFORMATION
  Report Type: Spontaneous
  Country: US (occurrence: US)
  Receive Date: 20140411
  Receipt Date: 20140411
  Transmission Date: 20141212
  Serious: Yes (Hospitalization)
  Sender: FDA-Public Use
  Company Number: US-JNJFOC-20140407870

PATIENT
  Age: 78 Year
  Sex: Male

DRUGS (13)
  1. IMBRUVICA [Suspect]
     Indication: CHRONIC LYMPHOCYTIC LEUKAEMIA
     Route: 048
     Dates: start: 20140319, end: 20140323
  2. ASPIRIN [Concomitant]
  3. FLOMAX [Concomitant]
  4. LIPITOR [Concomitant]
  5. TENORMIN [Concomitant]
  6. LISINOPRIL [Concomitant]
  7. PRILOSEC [Concomitant]
  8. SYNTHROID [Concomitant]
  9. VITAMIN B12 [Concomitant]
  10. ZOLOFT [Concomitant]
  11. IRON [Concomitant]
  12. BACTRIM [Concomitant]
  13. DUTASTERIDE [Concomitant]

REACTIONS (1)
  - Vascular injury [Unknown]
